FAERS Safety Report 19954763 (Version 1)
Quarter: 2021Q4

REPORT INFORMATION
  Report Type: Spontaneous
  Country: CA (occurrence: CA)
  Receive Date: 20211014
  Receipt Date: 20211014
  Transmission Date: 20220303
  Serious: Yes (Disabling)
  Sender: FDA-Public Use
  Company Number: CA-ORGANON-O2110CAN000565

PATIENT
  Age: 64 Year
  Sex: Female

DRUGS (1)
  1. ZENHALE [Suspect]
     Active Substance: FORMOTEROL FUMARATE\MOMETASONE FUROATE
     Dosage: 2 DOSAGE FORM, BID (TWICE IN THE MORNING AND TWICE AT NIGHT)
     Route: 065
     Dates: start: 202108, end: 20211005

REACTIONS (6)
  - Back pain [Recovered/Resolved]
  - Pain [Recovered/Resolved]
  - Burning sensation [Recovering/Resolving]
  - Aphonia [Recovering/Resolving]
  - Muscle spasms [Recovering/Resolving]
  - Arthralgia [Recovered/Resolved]

NARRATIVE: CASE EVENT DATE: 20210101
